FAERS Safety Report 15449089 (Version 1)
Quarter: 2018Q3

REPORT INFORMATION
  Report Type: Spontaneous
  Country: US (occurrence: US)
  Receive Date: 20180930
  Receipt Date: 20180930
  Transmission Date: 20181010
  Serious: No
  Sender: FDA-Public Use
  Company Number: US-MYLANLABS-2018M1067689

PATIENT
  Sex: Female
  Weight: 57 kg

DRUGS (1)
  1. CLONAZEPAM TABLETS, USP [Suspect]
     Active Substance: CLONAZEPAM
     Indication: DYSTONIA
     Dosage: UNK
     Route: 048
     Dates: start: 2018, end: 2018

REACTIONS (4)
  - Ageusia [Recovering/Resolving]
  - Paraesthesia oral [Recovering/Resolving]
  - Off label use [Unknown]
  - Burning mouth syndrome [Recovering/Resolving]

NARRATIVE: CASE EVENT DATE: 2018
